FAERS Safety Report 8861180 (Version 1)
Quarter: 2012Q4

REPORT INFORMATION
  Report Type: 
  Country: US (occurrence: US)
  Receive Date: 20121025
  Receipt Date: 20121025
  Transmission Date: 20130627
  Serious: No
  Sender: FDA-Public Use
  Company Number: US-AMGEN-USASP2012012906

PATIENT
  Sex: Male
  Weight: 77.1 kg

DRUGS (4)
  1. ENBREL [Suspect]
     Indication: PRODUCT USED FOR UNKNOWN INDICATION
     Dosage: 50 mg, qwk
     Route: 058
  2. LISINOPRIL [Concomitant]
     Dosage: 20 mg, UNK
     Route: 048
  3. COLCRYS [Concomitant]
     Dosage: 0.6 mg, UNK
     Route: 048
  4. ULORIC [Concomitant]
     Dosage: 40 mg, UNK
     Route: 048

REACTIONS (2)
  - Dyspnoea [Unknown]
  - Weight increased [Unknown]
